FAERS Safety Report 9503082 (Version 3)
Quarter: 2013Q4

REPORT INFORMATION
  Report Type: Spontaneous
  Country: CH (occurrence: CH)
  Receive Date: 20130906
  Receipt Date: 20131108
  Transmission Date: 20140711
  Serious: Yes (Life-Threatening, Hospitalization, Other)
  Sender: FDA-Public Use
  Company Number: CH-PFIZER INC-2013255397

PATIENT
  Age: 61 Year
  Sex: Male

DRUGS (12)
  1. LYRICA [Suspect]
     Dosage: 200 MG, 1X/DAY
     Route: 048
     Dates: end: 20130415
  2. TRAMAL [Suspect]
     Dosage: 100 MG, 1X/DAY
     Route: 048
     Dates: end: 20130415
  3. LIORESAL [Suspect]
     Dosage: 40 MG, 1X/DAY
     Route: 048
     Dates: end: 20130415
  4. ABILIFY [Suspect]
     Dosage: 5 MG, 1X/DAY
     Route: 048
     Dates: start: 20130404, end: 20130415
  5. DAFALGAN [Concomitant]
     Dosage: 1 G, 4X/DAY
     Route: 048
  6. PANTOZOL [Concomitant]
     Dosage: 20 MG, 1X/DAY
     Route: 048
  7. ATORVASTATIN [Concomitant]
     Dosage: 40 MG, 1X/DAY
     Route: 048
  8. TOREM [Concomitant]
     Dosage: 5 MG, 1X/DAY
     Route: 048
  9. SINTROM [Concomitant]
     Dosage: UNK
     Route: 048
  10. CLEXANE [Concomitant]
     Dosage: 120 MG, 1X/DAY
     Route: 058
  11. CO AMOXICILLIN [Concomitant]
     Dosage: 6.6 G, DAILY
     Route: 042
  12. EXTRACT OF FRANGULA AND LACTULOSE [Concomitant]
     Dosage: 20-40 ML, 1X/DAY

REACTIONS (3)
  - Altered state of consciousness [Recovered/Resolved]
  - Renal failure [Unknown]
  - Dehydration [Unknown]
